FAERS Safety Report 17279961 (Version 4)
Quarter: 2020Q3

REPORT INFORMATION
  Report Type: Report from Study
  Country: None (occurrence: US)
  Receive Date: 20200116
  Receipt Date: 20200713
  Transmission Date: 20201102
  Serious: Yes (Other)
  Sender: FDA-Public Use
  Company Number: US-ABBVIE-19K-163-2891076-00

PATIENT
  Age: 61 Year
  Sex: Female
  Weight: 104.42 kg

DRUGS (5)
  1. HUMIRA [Suspect]
     Active Substance: ADALIMUMAB
     Indication: CROHN^S DISEASE
     Route: 058
     Dates: start: 20100101
  2. TRAMADOL. [Concomitant]
     Active Substance: TRAMADOL
     Indication: PRODUCT USED FOR UNKNOWN INDICATION
  3. ALAT [Concomitant]
     Indication: PRODUCT USED FOR UNKNOWN INDICATION
  4. HUMIRA [Suspect]
     Active Substance: ADALIMUMAB
     Indication: PSORIASIS
  5. HUMIRA [Suspect]
     Active Substance: ADALIMUMAB
     Indication: COLITIS ULCERATIVE

REACTIONS (14)
  - Renal function test abnormal [Recovered/Resolved]
  - Hypertension [Unknown]
  - Road traffic accident [Unknown]
  - Thyroid disorder [Unknown]
  - Depression [Unknown]
  - Spinal nerve stimulator implantation [Unknown]
  - Dehydration [Not Recovered/Not Resolved]
  - Feeling abnormal [Recovering/Resolving]
  - Osteoarthritis [Unknown]
  - Hip arthroplasty [Unknown]
  - Nasopharyngitis [Unknown]
  - Cataract [Recovered/Resolved]
  - Weight decreased [Recovering/Resolving]
  - Bronchitis [Unknown]

NARRATIVE: CASE EVENT DATE: 2012
